FAERS Safety Report 16415263 (Version 1)
Quarter: 2019Q3

REPORT INFORMATION
  Report Type: Spontaneous
  Country: US (occurrence: US)
  Receive Date: 20190610
  Receipt Date: 20190610
  Transmission Date: 20191004
  Serious: Yes (Other)
  Sender: FDA-Public Use
  Company Number: None

PATIENT
  Age: 79 Year
  Sex: Female
  Weight: 101.25 kg

DRUGS (9)
  1. HYDROCODONE/ACETAMINOPHEN [Suspect]
     Active Substance: ACETAMINOPHEN\HYDROCODONE
     Indication: PAIN
     Dosage: ?          QUANTITY:1 TABLET(S);OTHER FREQUENCY:EVERY 4 TO 6 HOURS;?
     Route: 048
     Dates: start: 20190605, end: 20190606
  2. BUPROPION. [Concomitant]
     Active Substance: BUPROPION
  3. OMEPRAZOLE. [Concomitant]
     Active Substance: OMEPRAZOLE
  4. IBUPROFEN. [Concomitant]
     Active Substance: IBUPROFEN
  5. HERBAL [Concomitant]
     Active Substance: HERBALS
  6. FINACEA [Concomitant]
     Active Substance: AZELAIC ACID
  7. DIGESTIVE AID [Concomitant]
  8. METHYLPHENIDATE. [Concomitant]
     Active Substance: METHYLPHENIDATE
  9. MULTIVITAMIN AND MINERAL [Concomitant]

REACTIONS (3)
  - Asthenia [None]
  - Urinary incontinence [None]
  - Fall [None]

NARRATIVE: CASE EVENT DATE: 20190606
